FAERS Safety Report 18294589 (Version 1)
Quarter: 2020Q3

REPORT INFORMATION
  Report Type: Spontaneous
  Country: US (occurrence: CA)
  Receive Date: 20200922
  Receipt Date: 20200922
  Transmission Date: 20201103
  Serious: Yes (Disabling, Other)
  Sender: FDA-Public Use
  Company Number: US-BAYER-2020-193449

PATIENT
  Age: 25 Year
  Sex: Male
  Weight: 76.99 kg

DRUGS (1)
  1. CIPROFLOXACIN. [Suspect]
     Active Substance: CIPROFLOXACIN
     Indication: EPIDIDYMITIS
     Dosage: 500 MG, BID
     Route: 048

REACTIONS (7)
  - Aggression [Not Recovered/Not Resolved]
  - Sensory loss [Not Recovered/Not Resolved]
  - Muscular weakness [Not Recovered/Not Resolved]
  - Blood urine present [Not Recovered/Not Resolved]
  - Depression [Not Recovered/Not Resolved]
  - Hypoaesthesia [Not Recovered/Not Resolved]
  - Mood altered [Not Recovered/Not Resolved]
